FAERS Safety Report 9110145 (Version 1)
Quarter: 2013Q1

REPORT INFORMATION
  Report Type: Report from Study
  Country: CA (occurrence: CA)
  Receive Date: 20130222
  Receipt Date: 20130222
  Transmission Date: 20140127
  Serious: Yes (Other)
  Sender: FDA-Public Use
  Company Number: CA-ROCHE-1193296

PATIENT
  Age: 29 Year
  Sex: Male
  Weight: 90.9 kg

DRUGS (5)
  1. RITUXAN [Suspect]
     Indication: PEMPHIGUS
     Dosage: DAY 1 AND 15
     Route: 042
     Dates: start: 20110329
  2. IMURAN [Concomitant]
  3. DIPHENHYDRAMINE HCL [Concomitant]
     Indication: PREMEDICATION
     Route: 048
     Dates: start: 20110329
  4. ACETAMINOPHEN [Concomitant]
     Indication: PREMEDICATION
     Route: 048
     Dates: start: 20110329
  5. METHYLPREDNISOLONE [Concomitant]
     Indication: PREMEDICATION
     Route: 042
     Dates: start: 20110329

REACTIONS (1)
  - Presyncope [Unknown]
